FAERS Safety Report 7799969-7 (Version None)
Quarter: 2011Q4

REPORT INFORMATION
  Report Type: 
  Country: None (occurrence: None)
  Receive Date: 20111006
  Receipt Date: 20110926
  Transmission Date: 20120403
  Serious: Yes (Life-Threatening)
  Sender: FDA-Public Use
  Company Number: GB-JNJFOC-20110910659

PATIENT
  Age: 16 Year
  Sex: Female
  Weight: 75.1 kg

DRUGS (2)
  1. AZATHIOPRINE [Concomitant]
     Indication: CROHN'S DISEASE
     Route: 048
     Dates: start: 20110601
  2. INFLIXIMAB, RECOMBINANT [Suspect]
     Indication: CROHN'S DISEASE
     Route: 042
     Dates: start: 20110908, end: 20110908

REACTIONS (4)
  - SWELLING FACE [None]
  - EYE SWELLING [None]
  - VOMITING [None]
  - LIP SWELLING [None]
